FAERS Safety Report 4995690-9 (Version None)
Quarter: 2006Q2

REPORT INFORMATION
  Report Type: 
  Country: None (occurrence: None)
  Receive Date: 20060508
  Receipt Date: 20060426
  Transmission Date: 20061013
  Serious: Yes (Hospitalization)
  Sender: FDA-Public Use
  Company Number: US-BRISTOL-MYERS SQUIBB COMPANY-13358163

PATIENT
  Age: 75 Year
  Sex: Male
  Weight: 78 kg

DRUGS (13)
  1. PACLITAXEL [Suspect]
     Indication: LUNG CARCINOMA CELL TYPE UNSPECIFIED STAGE IV
     Route: 042
     Dates: start: 20060406, end: 20060406
  2. CARBOPLATIN [Suspect]
     Indication: LUNG CARCINOMA CELL TYPE UNSPECIFIED STAGE IV
     Route: 042
     Dates: start: 20060407, end: 20060407
  3. DEXAMETHASONE TAB [Suspect]
     Indication: HYPERSENSITIVITY
     Route: 048
     Dates: start: 20060306, end: 20060308
  4. PLAVIX [Concomitant]
     Dates: start: 20050301
  5. LIPITOR [Concomitant]
  6. TOPROL-XL [Concomitant]
     Route: 048
  7. ACETYLSALICYLIC ACID SRT [Concomitant]
     Route: 048
     Dates: start: 20050301
  8. CASODEX [Concomitant]
     Route: 048
     Dates: start: 20060127
  9. ZOLADEX [Concomitant]
     Route: 058
     Dates: start: 20060127
  10. BENADRYL [Concomitant]
     Indication: PREMEDICATION
  11. DEXAMETHASONE TAB [Concomitant]
     Indication: PREMEDICATION
     Route: 042
  12. CIMETIDINE [Concomitant]
     Indication: PREMEDICATION
     Route: 042
  13. PALONOSETRON [Concomitant]
     Indication: PREMEDICATION
     Route: 042

REACTIONS (4)
  - ARTHRALGIA [None]
  - HYPOTENSION [None]
  - MYALGIA [None]
  - SYNCOPE [None]
